FAERS Safety Report 8307771-2 (Version None)
Quarter: 2012Q2

REPORT INFORMATION
  Report Type: 
  Country: None (occurrence: None)
  Receive Date: 20120424
  Receipt Date: 20120419
  Transmission Date: 20120825
  Serious: No
  Sender: FDA-Public Use
  Company Number: US-BAYER-2012-039446

PATIENT
  Age: 23 Year
  Sex: Female
  Weight: 91 kg

DRUGS (2)
  1. ALEVE (CAPLET) [Suspect]
     Indication: PRODUCT USED FOR UNKNOWN INDICATION
  2. PERCOCET [Concomitant]

REACTIONS (1)
  - ABDOMINAL PAIN UPPER [None]
